FAERS Safety Report 23222340 (Version 1)
Quarter: 2023Q4

REPORT INFORMATION
  Report Type: Spontaneous
  Country: BR (occurrence: BR)
  Receive Date: 20231123
  Receipt Date: 20231123
  Transmission Date: 20240110
  Serious: Yes (Hospitalization, Other)
  Sender: FDA-Public Use
  Company Number: BR-ABBVIE-5501058

PATIENT
  Age: 48 Year
  Sex: Male
  Weight: 104 kg

DRUGS (3)
  1. RINVOQ [Suspect]
     Active Substance: UPADACITINIB
     Indication: Gout
     Route: 048
     Dates: start: 202306
  2. QUETIAPINE [Concomitant]
     Active Substance: QUETIAPINE
     Indication: Psychiatric care
     Dosage: 200 MILLIGRAM
     Route: 048
  3. LITHIUM CARBONATE [Concomitant]
     Active Substance: LITHIUM CARBONATE
     Indication: Psychiatric symptom
     Dosage: 600 MILLIGRAM
     Route: 048

REACTIONS (7)
  - Psoriatic arthropathy [Unknown]
  - Joint lock [Not Recovered/Not Resolved]
  - Pulmonary thrombosis [Unknown]
  - Gait inability [Not Recovered/Not Resolved]
  - Joint lock [Recovered/Resolved]
  - Joint swelling [Unknown]
  - Mobility decreased [Unknown]

NARRATIVE: CASE EVENT DATE: 20231102
